FAERS Safety Report 5900027-4 (Version None)
Quarter: 2008Q3

REPORT INFORMATION
  Report Type: 
  Country: None (occurrence: None)
  Receive Date: 20080925
  Receipt Date: 20080925
  Transmission Date: 20090109
  Serious: Yes (Hospitalization)
  Sender: FDA-Public Use
  Company Number: None

PATIENT
  Age: 60 Year
  Sex: Female
  Weight: 78.0187 kg

DRUGS (2)
  1. ATIVAN [Suspect]
     Indication: ANXIETY
     Dosage: VARIOUS
     Dates: start: 20071115, end: 20080924
  2. ATIVAN [Suspect]
     Indication: BIPOLAR DISORDER
     Dosage: VARIOUS
     Dates: start: 20071115, end: 20080924

REACTIONS (4)
  - DEPENDENCE [None]
  - INCONTINENCE [None]
  - MOTOR DYSFUNCTION [None]
  - OVERDOSE [None]
